FAERS Safety Report 4310374-8 (Version None)
Quarter: 2004Q1

REPORT INFORMATION
  Report Type: 
  Country: None (occurrence: None)
  Receive Date: 20040301
  Receipt Date: 20031114
  Transmission Date: 20041129
  Serious: No
  Sender: FDA-Public Use
  Company Number: WAES 0311USA01840

PATIENT
  Age: 49 Year
  Sex: Female
  Weight: 65.7716 kg

DRUGS (4)
  1. ZETIA [Suspect]
     Indication: BLOOD CHOLESTEROL INCREASED
     Dosage: 5 MG/DAILY/PO
     Route: 048
     Dates: start: 20030101
  2. ZETIA [Suspect]
     Indication: HYPERLIPIDAEMIA
     Dosage: 5 MG/DAILY/PO
     Route: 048
     Dates: start: 20030101
  3. DILTIAZEM HYDROCHLORIDE [Concomitant]
  4. ESTROGENIC SUBSTANCE [Concomitant]

REACTIONS (5)
  - DRUG INEFFECTIVE [None]
  - FATIGUE [None]
  - HIGH DENSITY LIPOPROTEIN INCREASED [None]
  - MEDICATION ERROR [None]
  - NAIL DISORDER [None]
